FAERS Safety Report 8514661-9 (Version None)
Quarter: 2012Q3

REPORT INFORMATION
  Report Type: 
  Country: None (occurrence: None)
  Receive Date: 20120712
  Receipt Date: 20120712
  Transmission Date: 20120928
  Serious: Yes (Other)
  Sender: FDA-Public Use
  Company Number: None

PATIENT
  Age: 38 Year
  Sex: Male

DRUGS (1)
  1. CIMZIA [Suspect]
     Indication: PSORIASIS
     Dosage: CIMZIA 400MG Q2WEEKS SQ
     Route: 058
     Dates: start: 20110726

REACTIONS (2)
  - PALPITATIONS [None]
  - DYSPNOEA [None]
